FAERS Safety Report 6177078-0 (Version None)
Quarter: 2009Q2

REPORT INFORMATION
  Report Type: 
  Country: None (occurrence: None)
  Receive Date: 20090430
  Receipt Date: 20090430
  Transmission Date: 20091009
  Serious: Yes (Other)
  Sender: FDA-Public Use
  Company Number: None

PATIENT
  Sex: Female
  Weight: 95.45 kg

DRUGS (8)
  1. VALSARTAN [Suspect]
     Dosage: 160MG TABLET 160 MG QD ORAL
     Route: 048
     Dates: start: 20090408, end: 20090429
  2. ALBUTEROL [Concomitant]
  3. ASPIRIN [Concomitant]
  4. BUTALBITAL+ASA+CAFFEINE (BUTALBITAL+ASA+CAFFFEINE) [Concomitant]
  5. EPIPEN (EPINEPHRINE AUTOINJECTOR) [Concomitant]
  6. IBUPROFEN [Concomitant]
  7. MAXZIDE-25 (TRIAMTERENE 37.5 MG/HYDROCHLOROTHIAZIDE 25 MG TAB) [Concomitant]
  8. VERAPAMIL [Concomitant]

REACTIONS (1)
  - HEADACHE [None]
